FAERS Safety Report 13485585 (Version 1)
Quarter: 2017Q2

REPORT INFORMATION
  Report Type: Spontaneous
  Country: US (occurrence: US)
  Receive Date: 20170425
  Receipt Date: 20170425
  Transmission Date: 20170830
  Serious: No
  Sender: FDA-Public Use
  Company Number: US-PFIZER INC-2017179158

PATIENT
  Age: 69 Year
  Sex: Male
  Weight: 87.9 kg

DRUGS (8)
  1. OSTEO BI-FLEX /01431201/ [Concomitant]
     Indication: ARTHROPATHY
     Dosage: TAKES 1 A DAY
  2. CHONDROITIN W/GLUCOSAMINE /02118501/ [Concomitant]
     Indication: ARTHROPATHY
  3. CELEBREX [Concomitant]
     Active Substance: CELECOXIB
     Dosage: 200 MG, 2X/DAY
     Dates: start: 2005
  4. NEURONTIN [Concomitant]
     Active Substance: GABAPENTIN
     Indication: AFFECTIVE DISORDER
     Dosage: 400 MG, AT BEDTIME (IN 1992 OR 1993)
  5. TOVIAZ [Suspect]
     Active Substance: FESOTERODINE FUMARATE
     Indication: BLADDER PAIN
  6. TOVIAZ [Suspect]
     Active Substance: FESOTERODINE FUMARATE
     Indication: BLADDER DISORDER
     Dosage: 4 MG, 1X/DAY
     Dates: start: 20170419
  7. CHONDROITIN W/GLUCOSAMINE /02118501/ [Concomitant]
     Indication: CHONDROPATHY
     Dosage: [CHONDROITIN 1200MG]/[ GLUCOSAMINE 1500 MG] TAKES 1 A DAY
  8. COLLAGEN [Concomitant]
     Active Substance: COLLAGEN
     Indication: ROUTINE HEALTH MAINTENANCE
     Dosage: 1 A DAY

REACTIONS (3)
  - Wrong technique in product usage process [Unknown]
  - Prescription drug used without a prescription [Unknown]
  - Dry mouth [Recovered/Resolved]

NARRATIVE: CASE EVENT DATE: 20170420
